FAERS Safety Report 21218241 (Version 2)
Quarter: 2022Q3

REPORT INFORMATION
  Report Type: Report from Study
  Country: RU (occurrence: RU)
  Receive Date: 20220816
  Receipt Date: 20220907
  Transmission Date: 20221026
  Serious: Yes (Hospitalization, Other)
  Sender: FDA-Public Use
  Company Number: RU-NOVARTISPH-NVSC2022RU181349

PATIENT
  Age: 4 Year
  Sex: Female

DRUGS (4)
  1. TRAMETINIB [Suspect]
     Active Substance: TRAMETINIB
     Indication: Astrocytoma
     Dosage: 6 ML (0.3 MG) (ROUTE; GASTROSTOMA)
     Route: 065
     Dates: start: 20210924, end: 20220127
  2. TRAMETINIB [Suspect]
     Active Substance: TRAMETINIB
     Dosage: UNK
     Route: 065
     Dates: start: 20220218
  3. ENALAPRIL [Concomitant]
     Active Substance: ENALAPRIL
     Indication: Product used for unknown indication
     Dosage: UNK
     Route: 065
  4. TRIMEBUTINE [Concomitant]
     Active Substance: TRIMEBUTINE
     Indication: Product used for unknown indication
     Dosage: UNK
     Route: 065

REACTIONS (9)
  - Intestinal haemorrhage [Recovered/Resolved]
  - Large intestinal haemorrhage [Recovered/Resolved]
  - Anaemia [Recovered/Resolved]
  - Colitis [Recovered/Resolved]
  - Intestinal haemorrhage [Unknown]
  - Gastrointestinal inflammation [Unknown]
  - Enteritis [Unknown]
  - Petechiae [Unknown]
  - Incorrect route of product administration [Unknown]

NARRATIVE: CASE EVENT DATE: 20210924
